FAERS Safety Report 24876328 (Version 1)
Quarter: 2025Q1

REPORT INFORMATION
  Report Type: Spontaneous
  Country: CA (occurrence: CA)
  Receive Date: 20250123
  Receipt Date: 20250123
  Transmission Date: 20250409
  Serious: Yes (Hospitalization, Disabling, Other)
  Sender: CSL BEHRING
  Company Number: CA-BEH-2025192372

PATIENT
  Age: 45 Year
  Sex: Male

DRUGS (8)
  1. HUMAN IMMUNOGLOBULIN G [Suspect]
     Active Substance: HUMAN IMMUNOGLOBULIN G
     Indication: Immune thrombocytopenia
     Route: 042
  2. ALEMTUZUMAB [Suspect]
     Active Substance: ALEMTUZUMAB
     Indication: Relapsing-remitting multiple sclerosis
     Dosage: 12 MG, OD
     Route: 041
  3. ACETAMINOPHEN [Concomitant]
     Active Substance: ACETAMINOPHEN
     Route: 048
  4. BACLOFEN [Concomitant]
     Active Substance: BACLOFEN
     Dosage: UNK, OD
     Route: 048
  5. CITALOPRAM [Concomitant]
     Active Substance: CITALOPRAM
     Dosage: UNK, OD
     Route: 048
  6. MAGNESIUM MALATE [Concomitant]
     Active Substance: MAGNESIUM MALATE
     Dosage: UNK, OD
     Route: 048
  7. VITAMIN D [Concomitant]
     Active Substance: VITAMIN D NOS
     Dosage: UNK, OD
     Route: 048
  8. VITAMINS NOS [Concomitant]
     Active Substance: VITAMINS
     Dosage: UNK, OD
     Route: 048

REACTIONS (16)
  - Autoimmune haemolytic anaemia [Not Recovered/Not Resolved]
  - Blindness [Not Recovered/Not Resolved]
  - Cerebral thrombosis [Not Recovered/Not Resolved]
  - Contusion [Not Recovered/Not Resolved]
  - Headache [Not Recovered/Not Resolved]
  - Hospitalisation [Not Recovered/Not Resolved]
  - Immobile [Not Recovered/Not Resolved]
  - Immune thrombocytopenia [Not Recovered/Not Resolved]
  - Lymphocyte count decreased [Not Recovered/Not Resolved]
  - Meningitis cryptococcal [Not Recovered/Not Resolved]
  - Muscle spasticity [Not Recovered/Not Resolved]
  - Platelet count decreased [Not Recovered/Not Resolved]
  - Pneumonia cryptococcal [Not Recovered/Not Resolved]
  - Pulmonary thrombosis [Not Recovered/Not Resolved]
  - Unevaluable event [Not Recovered/Not Resolved]
  - White blood cell count decreased [Not Recovered/Not Resolved]
